FAERS Safety Report 4491405-1 (Version None)
Quarter: 2004Q4

REPORT INFORMATION
  Report Type: 
  Country: None (occurrence: None)
  Receive Date: 20041102
  Receipt Date: 20041020
  Transmission Date: 20050328
  Serious: Yes (Other)
  Sender: FDA-Public Use
  Company Number: 2004080720

PATIENT
  Age: 78 Year
  Sex: Female
  Weight: 56.246 kg

DRUGS (5)
  1. VISINE II EYE DROPS [Suspect]
     Indication: DRY EYE
     Dosage: 1 DROP EACH EYE 1-2 TIMES DAILY, OPHTHALMIC
     Route: 047
     Dates: start: 20010101, end: 20041005
  2. WARFARIN SODIUM [Concomitant]
  3. DIGOXIN [Concomitant]
  4. SPIRONOLACTONE [Concomitant]
  5. ASTEMIZOLE [Concomitant]

REACTIONS (1)
  - CATARACT [None]
